FAERS Safety Report 9596750 (Version 1)
Quarter: 2013Q4

REPORT INFORMATION
  Report Type: Spontaneous
  Country: GB (occurrence: GB)
  Receive Date: 20131004
  Receipt Date: 20131004
  Transmission Date: 20140711
  Serious: Yes (Other)
  Sender: FDA-Public Use
  Company Number: GB-ABBVIE-13P-167-1153954-00

PATIENT
  Age: 76 Year
  Sex: Female

DRUGS (4)
  1. HUMIRA [Suspect]
     Indication: ARTHRITIS
     Route: 058
  2. PENICILLIN NOS [Concomitant]
     Indication: PRODUCT USED FOR UNKNOWN INDICATION
     Route: 048
     Dates: start: 20130923
  3. METHOTREXATE [Concomitant]
     Indication: PRODUCT USED FOR UNKNOWN INDICATION
     Route: 048
     Dates: end: 201306
  4. MELOXICAM [Concomitant]
     Indication: PRODUCT USED FOR UNKNOWN INDICATION
     Dosage: ONCE A DAY IN THE MORNING (O.D MANE)
     Route: 048

REACTIONS (23)
  - Cough [Unknown]
  - Cough [Unknown]
  - Nausea [Unknown]
  - Asthenia [Unknown]
  - Abasia [Unknown]
  - Hypoaesthesia [Unknown]
  - Paraesthesia [Unknown]
  - Pyrexia [Unknown]
  - Peripheral coldness [Unknown]
  - Peripheral coldness [Unknown]
  - Skin discolouration [Unknown]
  - Skin discolouration [Unknown]
  - Hypoaesthesia [Unknown]
  - Hypoaesthesia [Unknown]
  - Ocular hyperaemia [Unknown]
  - Dry eye [Unknown]
  - Eye pain [Unknown]
  - Eye discharge [Unknown]
  - Dry mouth [Unknown]
  - Increased tendency to bruise [Unknown]
  - Haemorrhage subcutaneous [Unknown]
  - Wound [Unknown]
  - Impaired healing [Unknown]
